FAERS Safety Report 8535712-1 (Version None)
Quarter: 2012Q3

REPORT INFORMATION
  Report Type: 
  Country: None (occurrence: None)
  Receive Date: 20120725
  Receipt Date: 20120720
  Transmission Date: 20120928
  Serious: No
  Sender: FDA-Public Use
  Company Number: US-PFIZER INC-2012176274

PATIENT
  Sex: Female
  Weight: 58.05 kg

DRUGS (3)
  1. LEVOXYL [Suspect]
     Indication: AUTOIMMUNE THYROIDITIS
     Dosage: ONE AND A HALF TABLET, 1X/DAY
     Route: 048
     Dates: start: 20110201, end: 20120701
  2. LEVOXYL [Suspect]
     Dosage: ONE AND A HALF TABLET, 1X/DAY
     Dates: start: 20120401
  3. SYNTHROID [Suspect]
     Dosage: UNK
     Dates: start: 20110101, end: 20110201

REACTIONS (3)
  - MUCOUS STOOLS [None]
  - CONSTIPATION [None]
  - PRODUCT QUALITY ISSUE [None]
